FAERS Safety Report 5821600-8 (Version None)
Quarter: 2008Q3

REPORT INFORMATION
  Report Type: 
  Country: None (occurrence: None)
  Receive Date: 20080722
  Receipt Date: 20080708
  Transmission Date: 20090109
  Serious: Yes (Death)
  Sender: FDA-Public Use
  Company Number: 2008018186

PATIENT
  Sex: Male

DRUGS (2)
  1. DIPHENHYDRAMINE HCL [Suspect]
  2. DOXYLAMINE SUCCINATE [Suspect]

REACTIONS (2)
  - ACCIDENT [None]
  - DRUG SCREEN POSITIVE [None]
